FAERS Safety Report 16486519 (Version 1)
Quarter: 2019Q2

REPORT INFORMATION
  Report Type: Report from Study
  Country: US (occurrence: US)
  Receive Date: 20190627
  Receipt Date: 20190627
  Transmission Date: 20190711
  Serious: Yes (Other)
  Sender: FDA-Public Use
  Company Number: US-ALEXION PHARMACEUTICALS INC.-A201909492

PATIENT
  Sex: Male

DRUGS (2)
  1. IMMUNOGLOBULIN                     /00025201/ [Concomitant]
     Active Substance: HUMAN IMMUNOGLOBULIN G
     Indication: PRODUCT USED FOR UNKNOWN INDICATION
     Dosage: 5 ROUNDS
     Route: 042
  2. SOLIRIS [Suspect]
     Active Substance: ECULIZUMAB
     Indication: MYASTHENIA GRAVIS
     Route: 065

REACTIONS (8)
  - Balance disorder [Unknown]
  - Tongue disorder [Unknown]
  - Mastication disorder [Unknown]
  - Dysphagia [Unknown]
  - Asthenia [Unknown]
  - Myasthenia gravis [Not Recovered/Not Resolved]
  - Eating disorder [Unknown]
  - Aphasia [Unknown]
